FAERS Safety Report 7197621-2 (Version None)
Quarter: 2010Q4

REPORT INFORMATION
  Report Type: 
  Country: None (occurrence: None)
  Receive Date: 20101213
  Receipt Date: 20101123
  Transmission Date: 20110411
  Serious: Yes (Other)
  Sender: FDA-Public Use
  Company Number: 2010AP002344

PATIENT
  Age: 40 Year
  Sex: Male

DRUGS (16)
  1. TOPIRAMATE [Suspect]
     Indication: EPILEPSY
     Dosage: 10 MG; QD PO, 50 MG; PO; TID
     Route: 048
     Dates: start: 20100201
  2. AMOXICILLIN [Concomitant]
  3. CITALOPRAM (CITALOPRAM) [Concomitant]
  4. INFLUENZA VIRUS VACCINE (INFLUENZA VIRUS VACCINE POLYVALENT) [Concomitant]
  5. LAMOTRIGINE [Concomitant]
  6. DEXAMETHASONE W/FRAMYCETIN SULFATE/GRAMICIDIN (SOFRACORT) [Concomitant]
  7. TOPIRAMATE [Concomitant]
  8. POLYTAR EMOLLIENT (POLYTAR EMOLLIENT) [Concomitant]
  9. ACETAMINOPHEN [Concomitant]
  10. CODEINE (CODEINE) [Concomitant]
  11. CIMETIDINE [Concomitant]
  12. BECLOMETHASONE DIPROPIONATE [Concomitant]
  13. GABAPENTIN [Concomitant]
  14. EUMOVATE (CLOBETASONE BUTYRATE) [Concomitant]
  15. BETNESOL [Concomitant]
  16. PROPRANOLOL [Concomitant]

REACTIONS (2)
  - CONDITION AGGRAVATED [None]
  - EPILEPSY [None]
